FAERS Safety Report 13100653 (Version 1)
Quarter: 2017Q1

REPORT INFORMATION
  Report Type: Spontaneous
  Country: MX (occurrence: MX)
  Receive Date: 20170110
  Receipt Date: 20170110
  Transmission Date: 20170428
  Serious: Yes (Other)
  Sender: FDA-Public Use
  Company Number: PHHY2016MX170102

PATIENT
  Age: 85 Year
  Sex: Female
  Weight: 57 kg

DRUGS (3)
  1. SIES [Concomitant]
     Active Substance: HIDROSMIN
     Indication: CARDIOVASCULAR DISORDER
     Dosage: UNK
     Route: 065
  2. CO-DIOVAN [Suspect]
     Active Substance: HYDROCHLOROTHIAZIDE\VALSARTAN
     Indication: HYPERTENSION
     Dosage: 1 DF QD (DAILY ON AN EMPTY STOMACH), UNK
     Route: 048
     Dates: end: 201611
  3. PANTOPRAZOLE [Concomitant]
     Active Substance: PANTOPRAZOLE SODIUM
     Indication: GASTRITIS
     Dosage: 1 DF, QD (20 MG)
     Route: 048

REACTIONS (4)
  - Blood cholesterol increased [Not Recovered/Not Resolved]
  - Headache [Recovered/Resolved]
  - Hypertensive crisis [Recovered/Resolved]
  - Hypertension [Recovered/Resolved]

NARRATIVE: CASE EVENT DATE: 201611
